FAERS Safety Report 16392600 (Version 1)
Quarter: 2019Q2

REPORT INFORMATION
  Report Type: Spontaneous
  Country: CH (occurrence: CH)
  Receive Date: 20190605
  Receipt Date: 20190605
  Transmission Date: 20190711
  Serious: Yes (Hospitalization, Other)
  Sender: FDA-Public Use
  Company Number: CH-LUPIN PHARMACEUTICALS INC.-2019-03322

PATIENT
  Age: 47 Year
  Sex: Female

DRUGS (4)
  1. ZOLPIDEM [Suspect]
     Active Substance: ZOLPIDEM\ZOLPIDEM TARTRATE
     Indication: INSOMNIA
     Dosage: 10 MILLIGRAM, QD
     Route: 065
     Dates: start: 2014, end: 2017
  2. ZOLPIDEM [Suspect]
     Active Substance: ZOLPIDEM\ZOLPIDEM TARTRATE
     Indication: ARTHRALGIA
     Dosage: RAPIDLY INCREASED THE DOSE TO 70 MG/DAY DUE TO DRUG TOLERANCE
     Route: 065
     Dates: end: 2017
  3. ZOLPIDEM [Suspect]
     Active Substance: ZOLPIDEM\ZOLPIDEM TARTRATE
     Dosage: 25 MILLIGRAM, QD
     Route: 065
     Dates: end: 2017
  4. ZOLPIDEM [Suspect]
     Active Substance: ZOLPIDEM\ZOLPIDEM TARTRATE
     Dosage: 160 MILLIGRAM, QD
     Route: 065

REACTIONS (16)
  - Aggression [Recovered/Resolved]
  - Irritability [Recovered/Resolved]
  - Mania [Recovered/Resolved]
  - Withdrawal syndrome [Unknown]
  - Tachyphrenia [Recovered/Resolved]
  - Delusional disorder, grandiose type [Recovered/Resolved]
  - Persecutory delusion [Recovered/Resolved]
  - Disinhibition [Recovered/Resolved]
  - Suicidal ideation [Recovered/Resolved]
  - Abnormal behaviour [Recovered/Resolved]
  - Insomnia [Recovered/Resolved]
  - Agitation [Recovered/Resolved]
  - Hypersexuality [Recovered/Resolved]
  - Drug abuse [Unknown]
  - Euphoric mood [Recovered/Resolved]
  - Overdose [Unknown]
